FAERS Safety Report 17071811 (Version 3)
Quarter: 2020Q3

REPORT INFORMATION
  Report Type: Other
  Country: GB (occurrence: GB)
  Receive Date: 20191125
  Receipt Date: 20200227
  Transmission Date: 20201104
  Serious: Yes (Hospitalization, Other)
  Sender: FDA-Public Use
  Company Number: GB-CELLTRION INC.-2019GB026629

PATIENT

DRUGS (13)
  1. OXYCODONE [Concomitant]
     Active Substance: OXYCODONE
     Indication: CHEST PAIN
     Dosage: 20 MG, DAILY
     Route: 048
     Dates: start: 20190926
  2. FLUCONAZOLE. [Concomitant]
     Active Substance: FLUCONAZOLE
     Dosage: 50 MG, OD
     Route: 048
     Dates: start: 20190812
  3. ACICLOVIR [Concomitant]
     Active Substance: ACYCLOVIR
     Dosage: 800 MG, QD
     Route: 048
     Dates: start: 20190812
  4. BENDAMUSTINE [Suspect]
     Active Substance: BENDAMUSTINE
     Indication: LYMPHOMA
     Dosage: 175 MG, EVERY 21 DAYS
     Route: 042
     Dates: start: 20190813, end: 20190926
  5. DUAKLIR GENUAIR [Concomitant]
     Active Substance: ACLIDINIUM BROMIDE\FORMOTEROL FUMARATE
     Indication: CHEST DISCOMFORT
     Dosage: 2 UNK, QD (1 PUFF)
     Route: 065
     Dates: start: 20191012
  6. CARBOCYSTEINE [Concomitant]
     Active Substance: CARBOCYSTEINE
     Dosage: 1125 MG, QD
     Route: 048
     Dates: start: 20191008
  7. RITUXIMAB (UNKNOWN) [Suspect]
     Active Substance: RITUXIMAB
     Indication: LYMPHOMA
     Dosage: 800 MG, EVERY 21 DAYS
     Route: 042
     Dates: start: 20190812, end: 20190925
  8. OXYCODONE [Concomitant]
     Active Substance: OXYCODONE
     Dosage: 60 MG, DAILY
     Route: 048
     Dates: start: 20191008
  9. COTRIMOXAZOLE [Concomitant]
     Active Substance: SULFAMETHOXAZOLE\TRIMETHOPRIM
     Dosage: 480 MG, OD
     Route: 048
     Dates: start: 20190812
  10. POLATUZUMAB VEDOTIN. [Suspect]
     Active Substance: POLATUZUMAB VEDOTIN
     Indication: LYMPHOMA
     Dosage: 164 MG, EVERY 21 DAYS
     Route: 042
     Dates: start: 20190813, end: 20190925
  11. TENOFOVIR [Concomitant]
     Active Substance: TENOFOVIR
     Dosage: 245 MG, OD
     Route: 048
     Dates: start: 20190812
  12. RITUXIMAB (UNKNOWN) [Suspect]
     Active Substance: RITUXIMAB
     Dosage: 800 MG, EVERY 21 DAYS
     Route: 042
     Dates: start: 20190812, end: 20190925
  13. FILGRASTIM [Concomitant]
     Active Substance: FILGRASTIM
     Dosage: 300 MICROGRAM, OD
     Route: 058
     Dates: start: 20190910, end: 20190914

REACTIONS (2)
  - Oesophageal carcinoma recurrent [Unknown]
  - Chest pain [Not Recovered/Not Resolved]

NARRATIVE: CASE EVENT DATE: 20191008
